FAERS Safety Report 9991644 (Version 3)
Quarter: 2014Q2

REPORT INFORMATION
  Report Type: Spontaneous
  Country: US (occurrence: US)
  Receive Date: 20140310
  Receipt Date: 20140401
  Transmission Date: 20141212
  Serious: Yes (Hospitalization)
  Sender: FDA-Public Use
  Company Number: US-LUNDBECK-DKLU1098013

PATIENT
  Age: 3 Year
  Sex: Male

DRUGS (8)
  1. SABRIL (FOR ORAL SOLUTION) [Suspect]
     Indication: INFANTILE SPASMS
     Dates: start: 20120309
  2. SABRIL (FOR ORAL SOLUTION) [Suspect]
     Dates: start: 20120309
  3. SABRIL (FOR ORAL SOLUTION) [Suspect]
     Dates: start: 20120309
  4. SABRIL (FOR ORAL SOLUTION) [Suspect]
     Dates: start: 20120309
  5. SABRIL (FOR ORAL SOLUTION) [Suspect]
     Dates: start: 201204
  6. CLORAZEPATE [Concomitant]
     Indication: PRODUCT USED FOR UNKNOWN INDICATION
  7. TOPAMAX [Concomitant]
     Indication: PRODUCT USED FOR UNKNOWN INDICATION
  8. DEPAKOTE [Concomitant]
     Indication: PRODUCT USED FOR UNKNOWN INDICATION

REACTIONS (3)
  - Convulsion [Recovered/Resolved]
  - Drug dose omission [Recovered/Resolved]
  - Drug ineffective [Unknown]
